FAERS Safety Report 23290687 (Version 3)
Quarter: 2024Q2

REPORT INFORMATION
  Report Type: Spontaneous
  Country: AR (occurrence: AR)
  Receive Date: 20231213
  Receipt Date: 20240517
  Transmission Date: 20240716
  Serious: Yes (Death, Hospitalization, Other)
  Sender: FDA-Public Use
  Company Number: AR-GLAXOSMITHKLINE-AR2023AMR173196

PATIENT

DRUGS (1)
  1. NUCALA [Suspect]
     Active Substance: MEPOLIZUMAB
     Indication: Asthma
     Dosage: 100 MG, Q4W (EVERY 28 DAYS)
     Dates: start: 20230801

REACTIONS (2)
  - Death [Fatal]
  - COVID-19 [Recovered/Resolved]

NARRATIVE: CASE EVENT DATE: 20231001
